FAERS Safety Report 8835689 (Version 1)
Quarter: 2012Q4

REPORT INFORMATION
  Report Type: 
  Country: MX (occurrence: MX)
  Receive Date: 20121011
  Receipt Date: 20121011
  Transmission Date: 20130627
  Serious: Yes (Death)
  Sender: FDA-Public Use
  Company Number: MX-UCBSA-068450

PATIENT
  Age: 27 Year
  Sex: Female
  Weight: 74 kg

DRUGS (2)
  1. KEPPRA [Suspect]
     Indication: EPILEPSY
     Route: 048
     Dates: start: 20120504, end: 20120930
  2. MAGNESIUM VALPROATE [Concomitant]
     Indication: EPILEPSY
     Route: 048
     Dates: start: 20120504, end: 20120930

REACTIONS (2)
  - Renal failure [Fatal]
  - Cardio-respiratory arrest [Fatal]
